FAERS Safety Report 4434418-8 (Version None)
Quarter: 2004Q3

REPORT INFORMATION
  Report Type: 
  Country: None (occurrence: None)
  Receive Date: 20040726
  Receipt Date: 20040406
  Transmission Date: 20050211
  Serious: No
  Sender: FDA-Public Use
  Company Number: USA040464276

PATIENT
  Age: 48 Year
  Sex: Female

DRUGS (4)
  1. FORTEO [Suspect]
     Dates: start: 20040330
  2. EVISTA [Concomitant]
  3. REMERON [Concomitant]
  4. CALCIUM [Concomitant]

REACTIONS (4)
  - ARTHRALGIA [None]
  - BONE PAIN [None]
  - HEART RATE INCREASED [None]
  - PAIN IN EXTREMITY [None]
